FAERS Safety Report 20650178 (Version 3)
Quarter: 2022Q2

REPORT INFORMATION
  Report Type: Spontaneous
  Country: US (occurrence: US)
  Receive Date: 20220329
  Receipt Date: 20220624
  Transmission Date: 20220721
  Serious: No
  Sender: FDA-Public Use
  Company Number: US-AVEO ONCOLOGY-2022-AVEO-US000023

PATIENT

DRUGS (9)
  1. FOTIVDA [Suspect]
     Active Substance: TIVOZANIB HYDROCHLORIDE
     Indication: Renal cell carcinoma
     Dosage: 1.34 MG, DAILY ON DAYS 1-21 EVERY 28 DAYS
     Route: 048
     Dates: start: 20211006
  2. AMLODIPINE [Concomitant]
     Active Substance: AMLODIPINE BESYLATE
     Dosage: UNK MG
     Route: 048
  3. Pure hemp oil [Concomitant]
     Dosage: 1 UNK
     Route: 048
  4. DEXAMETHASONE [Concomitant]
     Active Substance: DEXAMETHASONE
     Dosage: 4 MG, DAILY ONE TABLET  30-45 MINUTES PRIOR TO EACH RADIATION TREATMENT
     Route: 048
  5. VITAMIN E [Concomitant]
     Active Substance: .ALPHA.-TOCOPHEROL
     Dosage: 1000 MG, DAILY
     Route: 048
  6. CALCIUM CARBONATE\ERGOCALCIFEROL\RETINOL [Concomitant]
     Active Substance: CALCIUM CARBONATE\ERGOCALCIFEROL\RETINOL
     Indication: Vitamin D deficiency
     Dosage: 0.5 NG, DAILY
     Route: 048
     Dates: start: 202204
  7. CURAMED [Concomitant]
     Dosage: 1 CAPSULE
     Route: 048
  8. BYSTOLIC [Concomitant]
     Active Substance: NEBIVOLOL HYDROCHLORIDE
     Dosage: 5 MG
  9. PERCURA [Concomitant]
     Dosage: 1 CAPSULE, DAILY
     Route: 048

REACTIONS (8)
  - Fatigue [Unknown]
  - Diarrhoea [Recovered/Resolved]
  - Pain [Unknown]
  - Blood calcium decreased [Unknown]
  - Vitamin D decreased [Unknown]
  - Renal cancer metastatic [Unknown]
  - Limb mass [Unknown]
  - Paratracheal lymphadenopathy [Unknown]

NARRATIVE: CASE EVENT DATE: 20211213
